FAERS Safety Report 8422684-3 (Version None)
Quarter: 2012Q2

REPORT INFORMATION
  Report Type: 
  Country: None (occurrence: None)
  Receive Date: 20120608
  Receipt Date: 20120528
  Transmission Date: 20120825
  Serious: Yes (Hospitalization)
  Sender: FDA-Public Use
  Company Number: PL-TEVA-340200ISR

PATIENT
  Age: 6 Year
  Sex: Male

DRUGS (6)
  1. VORICONAZOLE [Concomitant]
     Route: 065
  2. VINCRISTINE [Suspect]
     Indication: NEPHROBLASTOMA
     Route: 065
  3. FILGRASTIM [Concomitant]
     Route: 065
  4. DOXORUBICIN HCL [Suspect]
     Indication: NEPHROBLASTOMA
     Route: 065
  5. BENZOCAINE, DOXYCYCLINE, NYSTATIN, GLYCEROL [Suspect]
     Indication: MOUTH ULCERATION
     Dosage: 7.5% BENZOCAINE
     Route: 048
  6. CEFUROXIME [Concomitant]
     Route: 065

REACTIONS (5)
  - LEUKOPENIA [None]
  - METHAEMOGLOBINAEMIA [None]
  - LOCALISED INFECTION [None]
  - MOUTH ULCERATION [None]
  - NEUTROPENIA [None]
